FAERS Safety Report 6051845-6 (Version None)
Quarter: 2009Q1

REPORT INFORMATION
  Report Type: 
  Country: None (occurrence: None)
  Receive Date: 20090126
  Receipt Date: 20090121
  Transmission Date: 20090719
  Serious: Yes (Death, Hospitalization)
  Sender: FDA-Public Use
  Company Number: PHHY2009MX02347

PATIENT
  Age: 91 Year
  Sex: Female

DRUGS (5)
  1. ZELMAC [Suspect]
     Indication: IRRITABLE BOWEL SYNDROME
     Dosage: 2 TABLETS (6 MG) PER DAY
     Route: 048
     Dates: start: 20070608, end: 20090101
  2. COMBIVENT [Concomitant]
     Dosage: 3 INHALATIONS PER DAY
  3. AMBROXOL [Concomitant]
     Dosage: 3 TABLET DAY
     Route: 048
  4. FUROSEMIDE [Concomitant]
     Dosage: UNK
  5. ALBUTEROL SULFATE [Concomitant]
     Dosage: UNK

REACTIONS (2)
  - ARRHYTHMIA [None]
  - CARDIO-RESPIRATORY ARREST [None]
